FAERS Safety Report 25016602 (Version 1)
Quarter: 2025Q1

REPORT INFORMATION
  Report Type: Spontaneous
  Country: US (occurrence: US)
  Receive Date: 20250227
  Receipt Date: 20250227
  Transmission Date: 20250408
  Serious: No
  Sender: APOTEX
  Company Number: US-APOTEX-2025AP002336

PATIENT
  Age: 20 Year
  Sex: Male

DRUGS (2)
  1. MIDODRINE [Suspect]
     Active Substance: MIDODRINE
     Indication: Syncope
     Route: 065
  2. VALPROIC ACID [Concomitant]
     Active Substance: VALPROIC ACID
     Indication: Syncope
     Dosage: 750 MILLIGRAM, QD
     Route: 065
     Dates: start: 2020

REACTIONS (2)
  - Drug intolerance [Unknown]
  - Paraesthesia [Unknown]
